FAERS Safety Report 19020742 (Version 1)
Quarter: 2021Q1

REPORT INFORMATION
  Report Type: Spontaneous
  Country: US (occurrence: US)
  Receive Date: 20210317
  Receipt Date: 20210317
  Transmission Date: 20210420
  Serious: Yes (Other)
  Sender: FDA-Public Use
  Company Number: US-GLAXOSMITHKLINE-US2021GSK046211

PATIENT
  Sex: Male

DRUGS (4)
  1. ZANTAC [Suspect]
     Active Substance: RANITIDINE HYDROCHLORIDE
     Dosage: UNKNOWN AT THIS TIME BOTH
     Dates: start: 201403, end: 201704
  2. RANITIDINE CAPSULE [Suspect]
     Active Substance: RANITIDINE
     Dosage: UNKNOWN AT THIS TIME BOTH
     Dates: start: 201403, end: 201704
  3. ZANTAC [Suspect]
     Active Substance: RANITIDINE HYDROCHLORIDE
     Dosage: UNKNOWN AT THIS TIME BOTH
     Dates: start: 201403, end: 201704
  4. ZANTAC [Suspect]
     Active Substance: RANITIDINE HYDROCHLORIDE
     Dosage: UNKNOWN AT THIS TIME BOTH
     Dates: start: 201403, end: 201704

REACTIONS (1)
  - Prostate cancer [Unknown]
